FAERS Safety Report 10348317 (Version 2)
Quarter: 2014Q3

REPORT INFORMATION
  Report Type: Spontaneous
  Country: IT (occurrence: None)
  Receive Date: 20140725
  Receipt Date: 20140801
  Transmission Date: 20150326
  Serious: Yes (Other)
  Sender: FDA-Public Use
  Company Number: 7308836

PATIENT
  Age: 34 Year
  Sex: Female

DRUGS (1)
  1. EUTIROX [Suspect]
     Active Substance: LEVOTHYROXINE SODIUM
     Indication: HYPOTHYROIDISM
     Dosage: 125MG, 1 IN 1D, ORAL
     Route: 048
     Dates: start: 20140615, end: 20140715

REACTIONS (1)
  - Palpitations [None]

NARRATIVE: CASE EVENT DATE: 20140715
